FAERS Safety Report 6711928-1 (Version None)
Quarter: 2010Q2

REPORT INFORMATION
  Report Type: 
  Country: None (occurrence: None)
  Receive Date: 20100505
  Receipt Date: 20100120
  Transmission Date: 20101027
  Serious: No
  Sender: FDA-Public Use
  Company Number: US-TYCO HEALTHCARE/MALLINCKRODT-T201000327

PATIENT
  Sex: Male
  Weight: 104.31 kg

DRUGS (9)
  1. METHADONE HCL [Suspect]
     Indication: PAIN
     Dosage: 10 TABLETS QD
     Route: 048
  2. MORPHINE [Concomitant]
     Indication: PAIN
     Dosage: 100 MG, TID
  3. HYDROCODONE BITARTRATE [Concomitant]
     Indication: BREAKTHROUGH PAIN
     Dosage: 10 MG, PRN
  4. STOOL SOFTENER [Concomitant]
     Indication: CONSTIPATION
     Dosage: UNK
  5. VALIUM [Concomitant]
     Indication: SLEEP TERROR
     Dosage: 10 MG, TID
  6. VALIUM [Concomitant]
     Indication: MUSCLE SPASMS
  7. VALIUM [Concomitant]
     Indication: EPILEPSY
  8. CANNABIS [Concomitant]
     Indication: NAUSEA
     Dosage: UNK, BID
  9. CANNABIS [Concomitant]
     Indication: DECREASED APPETITE

REACTIONS (10)
  - ASTHENIA [None]
  - DISTURBANCE IN ATTENTION [None]
  - DRUG INEFFECTIVE [None]
  - FEELING ABNORMAL [None]
  - FEELING HOT [None]
  - HYPERHIDROSIS [None]
  - INHIBITORY DRUG INTERACTION [None]
  - OROPHARYNGEAL PAIN [None]
  - WEIGHT INCREASED [None]
  - WRONG TECHNIQUE IN DRUG USAGE PROCESS [None]
